FAERS Safety Report 7362573-9 (Version None)
Quarter: 2011Q1

REPORT INFORMATION
  Report Type: 
  Country: None (occurrence: None)
  Receive Date: 20110320
  Receipt Date: 20100909
  Transmission Date: 20110831
  Serious: Yes (Hospitalization)
  Sender: FDA-Public Use
  Company Number: US-BAYER-200942391NA

PATIENT
  Sex: Female
  Weight: 83.9 kg

DRUGS (3)
  1. UNASYN [Concomitant]
  2. DARVOCET [Concomitant]
     Indication: ABDOMINAL PAIN
  3. YAZ [Suspect]
     Indication: PRODUCT USED FOR UNKNOWN INDICATION
     Dates: start: 20090401, end: 20090601

REACTIONS (10)
  - GASTROOESOPHAGEAL REFLUX DISEASE [None]
  - ABDOMINAL PAIN [None]
  - CHOLELITHIASIS [None]
  - ABDOMINAL PAIN UPPER [None]
  - CHOLECYSTITIS ACUTE [None]
  - VOMITING [None]
  - GALLBLADDER DISORDER [None]
  - DYSPEPSIA [None]
  - NAUSEA [None]
  - PAIN [None]
